FAERS Safety Report 7048279-4 (Version None)
Quarter: 2010Q4

REPORT INFORMATION
  Report Type: 
  Country: None (occurrence: None)
  Receive Date: 20101014
  Receipt Date: 20101014
  Transmission Date: 20110411
  Serious: Yes (Other)
  Sender: FDA-Public Use
  Company Number: None

PATIENT
  Age: 33 Year
  Sex: Male
  Weight: 77.1115 kg

DRUGS (1)
  1. CIPROFLOXACIN [Suspect]
     Indication: BACTERIAL INFECTION
     Dosage: 500MG TWICE DAILY PO
     Route: 048
     Dates: start: 20100831, end: 20100907

REACTIONS (12)
  - ANXIETY [None]
  - ARTHRALGIA [None]
  - CARDIOVASCULAR DISORDER [None]
  - DYSGEUSIA [None]
  - IMMOBILE [None]
  - IMPAIRED WORK ABILITY [None]
  - JOINT CREPITATION [None]
  - NEUROPATHY PERIPHERAL [None]
  - PALPITATIONS [None]
  - PANIC ATTACK [None]
  - PERIPHERAL COLDNESS [None]
  - TINNITUS [None]
